FAERS Safety Report 21419260 (Version 3)
Quarter: 2022Q4

REPORT INFORMATION
  Report Type: Spontaneous
  Country: US (occurrence: US)
  Receive Date: 20221006
  Receipt Date: 20221214
  Transmission Date: 20230113
  Serious: No
  Sender: FDA-Public Use
  Company Number: US-BRISTOL-MYERS SQUIBB COMPANY-2022-116904

PATIENT
  Age: 86 Year
  Sex: Female
  Weight: 78 kg

DRUGS (3)
  1. REVLIMID [Suspect]
     Active Substance: LENALIDOMIDE
     Indication: Plasma cell myeloma
     Dosage: FREQ - DAILY X 14 DAYS ON AND 7 DAYS OFF
     Route: 048
     Dates: start: 20220827
  2. REVLIMID [Suspect]
     Active Substance: LENALIDOMIDE
     Dosage: FREQ - D 1-14 Q 21 DAYS
     Route: 048
     Dates: start: 20220827
  3. REVLIMID [Suspect]
     Active Substance: LENALIDOMIDE
     Dosage: DAILY 1-14, THEN 7 DAYS OFF
     Route: 048
     Dates: start: 20221010

REACTIONS (10)
  - Joint swelling [Not Recovered/Not Resolved]
  - Peripheral swelling [Not Recovered/Not Resolved]
  - Swelling face [Not Recovered/Not Resolved]
  - Oral herpes [Not Recovered/Not Resolved]
  - Gait disturbance [Not Recovered/Not Resolved]
  - Cough [Not Recovered/Not Resolved]
  - Off label use [Unknown]
  - Diarrhoea [Unknown]
  - Dehydration [Not Recovered/Not Resolved]
  - Blood iron decreased [Not Recovered/Not Resolved]
